FAERS Safety Report 16505823 (Version 1)
Quarter: 2019Q3

REPORT INFORMATION
  Report Type: Spontaneous
  Country: SE (occurrence: SE)
  Receive Date: 20190701
  Receipt Date: 20190701
  Transmission Date: 20191004
  Serious: Yes (Hospitalization)
  Sender: FDA-Public Use
  Company Number: SE-SA-2019SA169455

PATIENT
  Age: 28 Year
  Sex: Female

DRUGS (7)
  1. OMEPRAZOLE. [Suspect]
     Active Substance: OMEPRAZOLE
     Dosage: UNK UNK, UNK
     Route: 048
     Dates: start: 20190211, end: 20190211
  2. MELATONIN [Suspect]
     Active Substance: MELATONIN
     Dosage: 20 MG, UNK
     Route: 048
     Dates: start: 20190211, end: 20190211
  3. ZOPICLONE [Suspect]
     Active Substance: ZOPICLONE
     Dosage: ZOPICLONE 15 MG
     Route: 048
     Dates: start: 20190211, end: 20190211
  4. LAMOTRIGINE. [Suspect]
     Active Substance: LAMOTRIGINE
     Dosage: 550 MG, UNK
     Route: 048
     Dates: start: 20190211, end: 20190211
  5. FOLIC ACID. [Suspect]
     Active Substance: FOLIC ACID
     Dosage: UNK UNK, UNK
     Route: 048
     Dates: start: 20190211, end: 20190211
  6. ALIMEMAZINE TARTRATE [Suspect]
     Active Substance: TRIMEPRAZINE
     Dosage: 240 MG, UNK
     Route: 048
     Dates: start: 20190211, end: 20190211
  7. PROMETHAZINE HYDROCHLORIDE. [Suspect]
     Active Substance: PROMETHAZINE HYDROCHLORIDE
     Dosage: 200 MG, UNK
     Route: 048
     Dates: start: 20190211, end: 20190211

REACTIONS (3)
  - Intentional self-injury [Unknown]
  - Intentional overdose [Unknown]
  - Somnolence [Unknown]

NARRATIVE: CASE EVENT DATE: 20190211
